FAERS Safety Report 6261998-2 (Version None)
Quarter: 2009Q3

REPORT INFORMATION
  Report Type: 
  Country: None (occurrence: None)
  Receive Date: 20090707
  Receipt Date: 20090707
  Transmission Date: 20100115
  Serious: Yes (Life-Threatening, Other)
  Sender: FDA-Public Use
  Company Number: None

PATIENT
  Age: 80 Year
  Sex: Female
  Weight: 64.8644 kg

DRUGS (1)
  1. AMIODARONE HCL [Suspect]
     Indication: HEART RATE IRREGULAR
     Dosage: 200 MG ONCE PER DAY PO
     Route: 048
     Dates: start: 20090513, end: 20090605

REACTIONS (8)
  - CHEST PAIN [None]
  - COUGH [None]
  - DYSPNOEA [None]
  - FEELING ABNORMAL [None]
  - HEADACHE [None]
  - HEART RATE IRREGULAR [None]
  - PULMONARY OEDEMA [None]
  - THROMBOSIS [None]
